FAERS Safety Report 19029284 (Version 2)
Quarter: 2021Q3

REPORT INFORMATION
  Report Type: Spontaneous
  Country: US (occurrence: US)
  Receive Date: 20210318
  Receipt Date: 20210712
  Transmission Date: 20211014
  Serious: Yes (Life-Threatening, Hospitalization)
  Sender: FDA-Public Use
  Company Number: US-TEVA-2021-US-1890775

PATIENT
  Age: 15 Year
  Sex: Female

DRUGS (17)
  1. LORAZEPAM. [Suspect]
     Active Substance: LORAZEPAM
     Indication: DYSPNOEA
  2. DEXAMETHASONE. [Suspect]
     Active Substance: DEXAMETHASONE
     Indication: STRIDOR
     Route: 065
  3. LORAZEPAM. [Suspect]
     Active Substance: LORAZEPAM
     Indication: STRIDOR
     Route: 065
  4. RACEMIC EPINEPHRINE [Suspect]
     Active Substance: RACEPINEPHRINE
     Indication: DYSPNOEA
  5. ALBUTEROL. [Suspect]
     Active Substance: ALBUTEROL
     Indication: OBSTRUCTIVE AIRWAYS DISORDER
  6. LORAZEPAM. [Suspect]
     Active Substance: LORAZEPAM
     Indication: OBSTRUCTIVE AIRWAYS DISORDER
  7. RACEMIC EPINEPHRINE [Suspect]
     Active Substance: RACEPINEPHRINE
     Indication: OBSTRUCTIVE AIRWAYS DISORDER
  8. DIPHENHYDRAMINE. [Suspect]
     Active Substance: DIPHENHYDRAMINE
     Indication: DYSPNOEA
  9. DIPHENHYDRAMINE. [Suspect]
     Active Substance: DIPHENHYDRAMINE
     Indication: OBSTRUCTIVE AIRWAYS DISORDER
  10. ALBUTEROL. [Suspect]
     Active Substance: ALBUTEROL
     Indication: STRIDOR
     Route: 065
  11. DEXAMETHASONE. [Suspect]
     Active Substance: DEXAMETHASONE
     Indication: OBSTRUCTIVE AIRWAYS DISORDER
  12. DEXAMETHASONE. [Suspect]
     Active Substance: DEXAMETHASONE
     Indication: DYSPNOEA
  13. ALBUTEROL. [Suspect]
     Active Substance: ALBUTEROL
     Indication: DYSPNOEA
  14. RACEMIC EPINEPHRINE [Suspect]
     Active Substance: RACEPINEPHRINE
     Indication: STRIDOR
     Dosage: RACEMIC EPINEPHRINE
     Route: 065
  15. DIPHENHYDRAMINE. [Suspect]
     Active Substance: DIPHENHYDRAMINE
     Indication: STRIDOR
     Route: 065
  16. CYCLOPHOSPHAMIDE. [Concomitant]
     Active Substance: CYCLOPHOSPHAMIDE
     Indication: SYSTEMIC LUPUS ERYTHEMATOSUS
     Route: 065
  17. RITUXIMAB. [Concomitant]
     Active Substance: RITUXIMAB
     Indication: SYSTEMIC LUPUS ERYTHEMATOSUS
     Route: 065

REACTIONS (1)
  - Therapy non-responder [Unknown]
